FAERS Safety Report 19501570 (Version 1)
Quarter: 2021Q3

REPORT INFORMATION
  Report Type: Spontaneous
  Country: DE (occurrence: DE)
  Receive Date: 20210707
  Receipt Date: 20210707
  Transmission Date: 20211014
  Serious: Yes (Other)
  Sender: FDA-Public Use
  Company Number: DE-TEVA-2021-DE-1927906

PATIENT
  Age: 73 Year
  Sex: Female
  Weight: 125 kg

DRUGS (1)
  1. ENALAPRIL?RATIOPHARM 10 MG TABLETTEN [Suspect]
     Active Substance: ENALAPRIL MALEATE
     Indication: HYPERTENSION
     Dosage: 2X10 MG, 2 DF
     Route: 048
     Dates: end: 20201220

REACTIONS (4)
  - Genital haemorrhage [Recovered/Resolved]
  - Anal haemorrhage [Recovered/Resolved]
  - Haemorrhagic diathesis [Recovered/Resolved]
  - Reaction to excipient [Unknown]

NARRATIVE: CASE EVENT DATE: 2020
